FAERS Safety Report 20824140 (Version 1)
Quarter: 2022Q2

REPORT INFORMATION
  Report Type: Spontaneous
  Country: CA (occurrence: None)
  Receive Date: 20220513
  Receipt Date: 20220513
  Transmission Date: 20220721
  Serious: Yes (Other)
  Sender: FDA-Public Use
  Company Number: CA-ROCHE-3088603

PATIENT
  Age: 64 Year
  Sex: Male

DRUGS (1)
  1. PIRFENIDONE [Suspect]
     Active Substance: PIRFENIDONE
     Indication: Idiopathic pulmonary fibrosis
     Route: 048

REACTIONS (5)
  - Abdominal pain [Unknown]
  - Diarrhoea haemorrhagic [Unknown]
  - Pruritus [Unknown]
  - Rash [Unknown]
  - Skin exfoliation [Unknown]
